FAERS Safety Report 10489827 (Version 3)
Quarter: 2015Q1

REPORT INFORMATION
  Report Type: Report from Study
  Country: BR (occurrence: BR)
  Receive Date: 20141002
  Receipt Date: 20150327
  Transmission Date: 20150720
  Serious: Yes (Other)
  Sender: FDA-Public Use
  Company Number: BR-ABBVIE-14P-020-1290564-00

PATIENT
  Age: 57 Year
  Sex: Male
  Weight: 100 kg

DRUGS (6)
  1. RYTMONORM [Suspect]
     Active Substance: PROPAFENONE
     Dosage: DAILY DOSE 600 MILLIGRAM, IN THE MORNING/ AT NIGHT
     Route: 048
     Dates: start: 20140925
  2. AMLODIPINE [Concomitant]
     Active Substance: AMLODIPINE BESYLATE
     Indication: BLOOD PRESSURE
     Dosage: FREQUENCY: 2 TABLETS AND A HALF IN THE MORNING AND 2 TABLETS AND A HALF AT NIGHT
  3. ENALAPRIL [Concomitant]
     Active Substance: ENALAPRIL
     Indication: BLOOD PRESSURE
     Dosage: DAILY DOSE 2 TABLET, IN THE MORNING/ AT NIGHT
     Route: 048
  4. RYTMONORM [Suspect]
     Active Substance: PROPAFENONE
     Indication: ARRHYTHMIA
     Dosage: DAILY DOSE 600 MILLIGRAM, IN THE MORNING/ AT NIGHT
     Route: 048
     Dates: end: 20140922
  5. LITHIUM CARBONATE. [Concomitant]
     Active Substance: LITHIUM CARBONATE
     Indication: BIPOLAR DISORDER
     Dosage: DAILY DOSE 2 TABLET, IN THE MORNING/ AT NIGHT
  6. DEPAKOTE [Suspect]
     Active Substance: DIVALPROEX SODIUM
     Indication: BIPOLAR DISORDER
     Dosage: DAILY DOSE 1500 MILLIGRAM, 1 TABLET IN THE MORNING/2 AT NIGHT
     Route: 048
     Dates: start: 2006

REACTIONS (2)
  - Arrhythmia [Recovering/Resolving]
  - Drug dose omission [Recovered/Resolved]

NARRATIVE: CASE EVENT DATE: 2014
